FAERS Safety Report 18858591 (Version 1)
Quarter: 2021Q1

REPORT INFORMATION
  Report Type: Spontaneous
  Country: US (occurrence: US)
  Receive Date: 20210206
  Receipt Date: 20210206
  Transmission Date: 20210420
  Serious: Yes (Other)
  Sender: FDA-Public Use
  Company Number: None

PATIENT
  Age: 78 Year
  Sex: Male
  Weight: 81 kg

DRUGS (3)
  1. ELIQUIS [Suspect]
     Active Substance: APIXABAN
  2. SAM?E 400 MG [Concomitant]
     Active Substance: ADEMETIONINE
     Dates: start: 20201208, end: 20210204
  3. SAM?E COMPLETE [Suspect]
     Active Substance: ADEMETIONINE
     Indication: ARTHRITIS
     Route: 048
     Dates: start: 20201206, end: 20210205

REACTIONS (3)
  - Haemorrhage [None]
  - Blood urine present [None]
  - Thrombosis [None]

NARRATIVE: CASE EVENT DATE: 20210203
